FAERS Safety Report 24065949 (Version 1)
Quarter: 2024Q3

REPORT INFORMATION
  Report Type: Spontaneous
  Country: US (occurrence: None)
  Receive Date: 20240708
  Receipt Date: 20240708
  Transmission Date: 20241017
  Serious: Yes (Other)
  Sender: Public
  Company Number: None

PATIENT
  Age: 34 Year
  Sex: Female
  Weight: 55.35 kg

DRUGS (20)
  1. MONTELUKAST [Suspect]
     Active Substance: MONTELUKAST SODIUM
     Indication: Asthma
     Dosage: 1 TABLET DAILY ORAL
     Route: 048
     Dates: start: 20240527, end: 20240624
  2. MONTELUKAST [Suspect]
     Active Substance: MONTELUKAST SODIUM
     Indication: Hypersensitivity
  3. PREGABALIN [Concomitant]
     Active Substance: PREGABALIN
  4. GUANFACINE HYDROCHLORIDE [Concomitant]
     Active Substance: GUANFACINE HYDROCHLORIDE
  5. AZELASTINE HYDROCHLORIDE [Concomitant]
     Active Substance: AZELASTINE HYDROCHLORIDE
  6. D3 VITAMIN [Concomitant]
  7. SERTRALINE HYDROCHLORIDE [Concomitant]
     Active Substance: SERTRALINE HYDROCHLORIDE
  8. LAMICTAL [Concomitant]
     Active Substance: LAMOTRIGINE
  9. ALBUTEROL [Concomitant]
     Active Substance: ALBUTEROL
  10. Amphetamine Aspartate, Amphetamine Sulfate, Dextroamphetamine Sacchara [Concomitant]
  11. OMEPRAZOLE [Concomitant]
     Active Substance: OMEPRAZOLE
  12. CETIRIZINE HYDROCHLORIDE [Concomitant]
     Active Substance: CETIRIZINE HYDROCHLORIDE
  13. MONTELUKAST SODIUM [Concomitant]
     Active Substance: MONTELUKAST SODIUM
  14. PREDNISONE [Concomitant]
     Active Substance: PREDNISONE
  15. AZITHROMYCIN DIHYDRATE [Concomitant]
     Active Substance: AZITHROMYCIN DIHYDRATE
  16. POTASSIUM MAGNESIUM SODIUM [Concomitant]
  17. VITAMIN B2 [Concomitant]
     Active Substance: RIBOFLAVIN
  18. GABA L-THEANINE [Concomitant]
  19. ASHWGANDA VALERIAN PASSION FLOWER [Concomitant]
  20. CURCUMIN PHYTOSOME EXTRACTS [Concomitant]

REACTIONS (10)
  - Agitation [None]
  - Depression [None]
  - Memory impairment [None]
  - Restlessness [None]
  - Tremor [None]
  - Myalgia [None]
  - Speech disorder [None]
  - Somnolence [None]
  - Malaise [None]
  - Asthenia [None]

NARRATIVE: CASE EVENT DATE: 20240624
